FAERS Safety Report 8914361 (Version 1)
Quarter: 2012Q4

REPORT INFORMATION
  Report Type: 
  Country: US (occurrence: US)
  Receive Date: 20121116
  Receipt Date: 20121116
  Transmission Date: 20130627
  Serious: Yes (Other)
  Sender: FDA-Public Use
  Company Number: US-TEVA-369818USA

PATIENT
  Age: 56 Year
  Sex: Female

DRUGS (10)
  1. PROAIR HFA [Suspect]
     Dosage: two puffs every 4 hours as needed
  2. ADVAIR [Concomitant]
     Dosage: 1 puff every 12 hours
  3. FLEXERIL [Concomitant]
     Dosage: 30 Milligram Daily;
     Route: 048
     Dates: start: 20110706
  4. TRAMADOL [Concomitant]
     Dosage: every 4-6 hours as needed for pain
     Route: 048
     Dates: start: 20010101
  5. LIPITOR [Concomitant]
     Dosage: 20 Milligram Daily;
     Route: 048
  6. ASPIRIN [Concomitant]
     Dosage: 81 Milligram Daily;
     Route: 048
  7. ZETIA [Concomitant]
     Dosage: 10 Milligram Daily;
     Route: 048
  8. SINGULAIR [Concomitant]
     Dosage: 10 Milligram Daily;
     Route: 048
  9. METFORMIN [Concomitant]
     Dosage: 2000 Milligram Daily;
     Route: 048
  10. ENALAPRIL MALEATE [Concomitant]
     Dosage: 10 Milligram Daily;
     Route: 048
     Dates: start: 20120601

REACTIONS (2)
  - Type 2 diabetes mellitus [Not Recovered/Not Resolved]
  - Pain [Unknown]
